FAERS Safety Report 16933269 (Version 4)
Quarter: 2020Q4

REPORT INFORMATION
  Report Type: Spontaneous
  Country: IT (occurrence: IT)
  Receive Date: 20191018
  Receipt Date: 20201216
  Transmission Date: 20210113
  Serious: Yes (Other)
  Sender: FDA-Public Use
  Company Number: IT-SUN PHARMACEUTICAL INDUSTRIES LTD-2019RR-223953

PATIENT
  Age: 38 Year
  Sex: Female

DRUGS (1)
  1. SERTRALINE [Suspect]
     Active Substance: SERTRALINE HYDROCHLORIDE
     Indication: PANIC ATTACK
     Dosage: 200 MILLIGRAMS, DAILY
     Route: 048
     Dates: start: 20181101, end: 20190107

REACTIONS (5)
  - Paraesthesia [Recovered/Resolved]
  - Serotonin syndrome [Recovered/Resolved]
  - Dysaesthesia [Recovered/Resolved]
  - Drug abuse [Recovered/Resolved]
  - Muscle rigidity [Recovered/Resolved]

NARRATIVE: CASE EVENT DATE: 20190104
